FAERS Safety Report 7419903-9 (Version None)
Quarter: 2011Q2

REPORT INFORMATION
  Report Type: 
  Country: None (occurrence: None)
  Receive Date: 20110418
  Receipt Date: 20110321
  Transmission Date: 20111010
  Serious: Yes (Death, Other)
  Sender: FDA-Public Use
  Company Number: US-BAYER-200911465NA

PATIENT
  Age: 60 Year
  Sex: Male
  Weight: 81 kg

DRUGS (13)
  1. TRASYLOL [Suspect]
     Dosage: 200 ML (LOADING), UNK
     Route: 042
     Dates: start: 19990126, end: 19990126
  2. TRASYLOL [Suspect]
     Dosage: 50 ML/HR (INFUSION), UNK
     Route: 042
     Dates: start: 19990126, end: 19990126
  3. LISINOPRIL [Concomitant]
  4. ATENOLOL [Concomitant]
     Dosage: 50 MG, QD
  5. HEPARIN [Concomitant]
  6. MIDAZOLAM [Concomitant]
     Dosage: 10 MG, UNK
     Route: 042
     Dates: start: 19990126, end: 19990126
  7. HYDROCHLOROTHIAZIDE [Concomitant]
     Dosage: 25 MG, QD
  8. PANCURONIUM BROMIDE [Concomitant]
     Dosage: 8 UNK, UNK
     Route: 042
     Dates: start: 19990126, end: 19990126
  9. SUFENTA PRESERVATIVE FREE [Concomitant]
     Dosage: 200 MG, UNK
     Route: 042
     Dates: start: 19990126, end: 19990126
  10. TRASYLOL [Suspect]
     Indication: CORONARY ARTERY BYPASS
     Dosage: 1 ML (INITIAL), UNK
     Route: 042
     Dates: start: 19990126, end: 19990126
  11. NITROGLYCERIN [Concomitant]
     Dosage: 5 ML/HR, UNK
     Route: 042
     Dates: start: 19990126
  12. LEVOPHED [Concomitant]
     Dosage: 20 ML/HR, UNK
     Route: 042
     Dates: start: 19990126
  13. DOPAMINE HCL [Concomitant]
     Dosage: 3 MG/KG/HR
     Route: 042
     Dates: start: 19990126

REACTIONS (13)
  - EMOTIONAL DISTRESS [None]
  - ANXIETY [None]
  - PAIN [None]
  - RENAL INJURY [None]
  - DEATH [None]
  - STRESS [None]
  - ANHEDONIA [None]
  - MULTI-ORGAN FAILURE [None]
  - FEAR [None]
  - RENAL FAILURE [None]
  - UNEVALUABLE EVENT [None]
  - INJURY [None]
  - RENAL IMPAIRMENT [None]
